FAERS Safety Report 13544149 (Version 1)
Quarter: 2017Q2

REPORT INFORMATION
  Report Type: Spontaneous
  Country: IT (occurrence: IT)
  Receive Date: 20170515
  Receipt Date: 20170515
  Transmission Date: 20170830
  Serious: Yes (Death, Hospitalization)
  Sender: FDA-Public Use
  Company Number: IT-ACCORD-051327

PATIENT
  Age: 63 Year
  Sex: Male
  Weight: 80 kg

DRUGS (1)
  1. CAPECITABINA ACCORD [Suspect]
     Active Substance: CAPECITABINE
     Indication: RECTAL ADENOCARCINOMA
     Dosage: STRENGTH: 500 MG, ?DOSAGE FORM: COMPRESSED COVERED WITH FILM
     Route: 048
     Dates: start: 20161222, end: 20170109

REACTIONS (6)
  - Neutropenia [Fatal]
  - Septic shock [Unknown]
  - Asthenia [Fatal]
  - Diarrhoea [Fatal]
  - Weight decreased [Fatal]
  - Hypotension [Unknown]

NARRATIVE: CASE EVENT DATE: 20170109
